FAERS Safety Report 7433354-2 (Version None)
Quarter: 2011Q2

REPORT INFORMATION
  Report Type: 
  Country: None (occurrence: None)
  Receive Date: 20110422
  Receipt Date: 20110419
  Transmission Date: 20111010
  Serious: No
  Sender: FDA-Public Use
  Company Number: US-B.I. PHARMACEUTICALS,INC./RIDGEFIELD-2011-BP-06302BP

PATIENT
  Sex: Male

DRUGS (2)
  1. ATENOLOL [Concomitant]
     Dosage: 250 MG
  2. PRADAXA [Suspect]
     Dates: end: 20110211

REACTIONS (2)
  - OEDEMA PERIPHERAL [None]
  - PERIORBITAL OEDEMA [None]
